FAERS Safety Report 14366330 (Version 2)
Quarter: 2020Q3

REPORT INFORMATION
  Report Type: Spontaneous
  Country: US (occurrence: US)
  Receive Date: 20180109
  Receipt Date: 20200826
  Transmission Date: 20201102
  Serious: Yes (Hospitalization, Other)
  Sender: FDA-Public Use
  Company Number: US-ASTRAZENECA-2018SE01882

PATIENT
  Age: 25545 Day
  Sex: Male
  Weight: 60.3 kg

DRUGS (81)
  1. NEXIUM [Suspect]
     Active Substance: ESOMEPRAZOLE MAGNESIUM
     Indication: GASTRIC DISORDER
     Route: 048
     Dates: start: 200602, end: 201101
  2. NEXIUM [Suspect]
     Active Substance: ESOMEPRAZOLE MAGNESIUM
     Indication: PEPTIC ULCER
     Route: 048
     Dates: start: 200602, end: 201012
  3. PRILOSEC OTC [Suspect]
     Active Substance: OMEPRAZOLE MAGNESIUM
     Indication: PEPTIC ULCER
     Route: 048
     Dates: start: 2003, end: 2017
  4. GLIMEPIRIDE. [Concomitant]
     Active Substance: GLIMEPIRIDE
     Indication: DIABETES MELLITUS
     Dates: start: 200602, end: 200704
  5. HYDROXYCHLOROQUINE [Concomitant]
     Active Substance: HYDROXYCHLOROQUINE
  6. PROAIR HFA [Concomitant]
     Active Substance: ALBUTEROL SULFATE
  7. PENICILLIN [Concomitant]
     Active Substance: PENICILLIN
  8. TRILYTE [Concomitant]
     Active Substance: POLYETHYLENE GLYCOL 3350\POTASSIUM CHLORIDE\SODIUM BICARBONATE\SODIUM CHLORIDE
  9. LIPITOR [Concomitant]
     Active Substance: ATORVASTATIN CALCIUM
     Indication: BLOOD CHOLESTEROL
     Dates: start: 200602, end: 201103
  10. LANTUS [Concomitant]
     Active Substance: INSULIN GLARGINE
     Indication: DIABETES MELLITUS
     Dates: start: 200706, end: 201212
  11. NOVOLOG [Concomitant]
     Active Substance: INSULIN ASPART
  12. AUGMENTIN [Concomitant]
     Active Substance: AMOXICILLIN\CLAVULANATE POTASSIUM
  13. FLEXERIL [Concomitant]
     Active Substance: CYCLOBENZAPRINE HYDROCHLORIDE
  14. LEVOCETIRIZINE [Concomitant]
     Active Substance: LEVOCETIRIZINE
  15. VERAMYST [Concomitant]
     Active Substance: FLUTICASONE FUROATE
  16. CEREFOLIN [Concomitant]
     Active Substance: CYANOCOBALAMIN CO-57\LEVOMEFOLATE CALCIUM\PYRIDOXINE HYDROCHLORIDE\RIBOFLAVIN
  17. CLARITHROMYCIN. [Concomitant]
     Active Substance: CLARITHROMYCIN
  18. ZYMAR [Concomitant]
     Active Substance: GATIFLOXACIN
  19. PRILOSEC OTC [Suspect]
     Active Substance: OMEPRAZOLE MAGNESIUM
     Indication: GASTRIC DISORDER
     Route: 048
     Dates: start: 2003, end: 2017
  20. METFORMIN [Concomitant]
     Active Substance: METFORMIN HYDROCHLORIDE
     Indication: DIABETES MELLITUS
     Dates: start: 200602, end: 200708
  21. PLAVIX [Concomitant]
     Active Substance: CLOPIDOGREL BISULFATE
     Indication: ANTICOAGULANT THERAPY
     Dates: start: 200703
  22. CHLORHEXIDINE GLUCONATE. [Concomitant]
     Active Substance: CHLORHEXIDINE GLUCONATE
  23. DESOXIMETASONE. [Concomitant]
     Active Substance: DESOXIMETASONE
  24. DOXYCYCLINE MONOHYDRATE [Concomitant]
     Active Substance: DOXYCYCLINE
  25. SINGULAIR [Concomitant]
     Active Substance: MONTELUKAST SODIUM
  26. DYGASE [Concomitant]
  27. OXYCODONE/ APAP [Concomitant]
     Active Substance: ACETAMINOPHEN\OXYCODONE HYDROCHLORIDE
  28. ASPIRIN. [Concomitant]
     Active Substance: ASPIRIN
     Indication: CARDIAC DISORDER
     Dates: start: 2015
  29. METOPROLOL. [Concomitant]
     Active Substance: METOPROLOL
  30. BENICAR [Concomitant]
     Active Substance: OLMESARTAN MEDOXOMIL
  31. LOPRESSOR [Concomitant]
     Active Substance: METOPROLOL TARTRATE
  32. HYDROCHLOROTHIAZIDE. [Concomitant]
     Active Substance: HYDROCHLOROTHIAZIDE
  33. TETRACYCLINE [Concomitant]
     Active Substance: TETRACYCLINE
  34. PRANDIN [Concomitant]
     Active Substance: REPAGLINIDE
  35. CENTANY [Concomitant]
     Active Substance: MUPIROCIN
  36. NEXIUM [Suspect]
     Active Substance: ESOMEPRAZOLE MAGNESIUM
     Indication: PEPTIC ULCER
     Route: 048
     Dates: start: 200602, end: 201101
  37. NEXIUM [Suspect]
     Active Substance: ESOMEPRAZOLE MAGNESIUM
     Indication: GASTROOESOPHAGEAL REFLUX DISEASE
     Route: 048
     Dates: start: 200602, end: 201012
  38. AVALIDE [Concomitant]
     Active Substance: HYDROCHLOROTHIAZIDE\IRBESARTAN
     Indication: BLOOD PRESSURE MEASUREMENT
     Dates: start: 200602, end: 200807
  39. FOLBEE [Concomitant]
     Active Substance: CYANOCOBALAMIN\FOLIC ACID\PYRIDOXINE HYDROCHLORIDE
  40. VITAMIN D3 [Concomitant]
     Active Substance: CHOLECALCIFEROL
  41. CLOPIDOGREL [Concomitant]
     Active Substance: CLOPIDOGREL BISULFATE
  42. OMNARIS [Concomitant]
     Active Substance: CICLESONIDE
  43. PATANASE [Concomitant]
     Active Substance: OLOPATADINE HYDROCHLORIDE
  44. TRIAMTERENE. [Concomitant]
     Active Substance: TRIAMTERENE
  45. ACETYLCYSTEINE. [Concomitant]
     Active Substance: ACETYLCYSTEINE
  46. NEXIUM [Suspect]
     Active Substance: ESOMEPRAZOLE MAGNESIUM
     Indication: GASTROOESOPHAGEAL REFLUX DISEASE
     Route: 048
     Dates: start: 200602, end: 201101
  47. ACTOS [Concomitant]
     Active Substance: PIOGLITAZONE HYDROCHLORIDE
     Indication: DIABETES MELLITUS
     Dates: start: 200602, end: 200605
  48. ACULAR [Concomitant]
     Active Substance: KETOROLAC TROMETHAMINE
     Indication: EYE DROP INSTILLATION
     Dates: start: 200607, end: 200609
  49. SIMVASTATIN. [Concomitant]
     Active Substance: SIMVASTATIN
  50. HYDROCODONE?ACETAMINOPHEN [Concomitant]
     Active Substance: ACETAMINOPHEN\HYDROCODONE
  51. PENNSAID [Concomitant]
     Active Substance: DICLOFENAC SODIUM
  52. ZITHROMAX [Concomitant]
     Active Substance: AZITHROMYCIN DIHYDRATE
  53. OSTEO BI?FLEX [Concomitant]
     Active Substance: CHONDROITIN SULFATE A\GLUCOSAMINE
  54. TRAMADOL. [Concomitant]
     Active Substance: TRAMADOL
  55. CAVAN [Concomitant]
  56. DOCQLACE [Concomitant]
     Active Substance: DOCUSATE SODIUM
  57. SUPRAX [Concomitant]
     Active Substance: CEFIXIME
  58. SPECTRACEF [Concomitant]
     Active Substance: CEFDITOREN PIVOXIL
  59. DIAZEPAM. [Concomitant]
     Active Substance: DIAZEPAM
  60. NEXIUM [Suspect]
     Active Substance: ESOMEPRAZOLE MAGNESIUM
     Indication: GASTRIC DISORDER
     Route: 048
     Dates: start: 200602, end: 201012
  61. ASTELIN [Concomitant]
     Active Substance: AZELASTINE HYDROCHLORIDE
     Indication: NASAL DISCOMFORT
     Dates: start: 200604
  62. AMLODIPINE [Concomitant]
     Active Substance: AMLODIPINE BESYLATE
  63. AMLODIPLNE BESYLATE [Concomitant]
  64. BYDUREON [Concomitant]
     Active Substance: EXENATIDE
  65. ZOSTAVAX [Concomitant]
     Active Substance: VARICELLA-ZOSTER VIRUS STRAIN OKA/MERCK LIVE ANTIGEN
  66. FEXOFENADINE [Concomitant]
     Active Substance: FEXOFENADINE HYDROCHLORIDE
  67. METHYLPREDNISOLONE. [Concomitant]
     Active Substance: METHYLPREDNISOLONE
  68. GUAIFENSSIN [Concomitant]
  69. PRILOSEC OTC [Suspect]
     Active Substance: OMEPRAZOLE MAGNESIUM
     Indication: GASTROOESOPHAGEAL REFLUX DISEASE
     Route: 048
     Dates: start: 2003, end: 2017
  70. MELOXICAM. [Concomitant]
     Active Substance: MELOXICAM
     Indication: MYALGIA
     Dates: start: 200804, end: 200808
  71. MULTIVITAMINS [Concomitant]
     Active Substance: VITAMINS
     Indication: GENERAL PHYSICAL CONDITION
     Dates: start: 2015
  72. FERRITIN [Concomitant]
     Active Substance: FERRITIN
  73. ONGLYZA [Concomitant]
     Active Substance: SAXAGLIPTIN HYDROCHLORIDE
  74. TAMSULOSIN [Concomitant]
     Active Substance: TAMSULOSIN
  75. PREDNISONE. [Concomitant]
     Active Substance: PREDNISONE
  76. CEPHALEXIN. [Concomitant]
     Active Substance: CEPHALEXIN
  77. FERROUS SULFATE. [Concomitant]
     Active Substance: FERROUS SULFATE
  78. MINOXIDIL. [Concomitant]
     Active Substance: MINOXIDIL
  79. NAPROXEN. [Concomitant]
     Active Substance: NAPROXEN
  80. TUSSIONEX PENNKINETIC [Concomitant]
     Active Substance: CHLORPHENIRAMINE\HYDROCODONE
  81. AVANDARYL [Concomitant]
     Active Substance: GLIMEPIRIDE\ROSIGLITAZONE MALEATE

REACTIONS (3)
  - Renal failure [Unknown]
  - Renal injury [Unknown]
  - Chronic kidney disease [Not Recovered/Not Resolved]

NARRATIVE: CASE EVENT DATE: 20130215
